FAERS Safety Report 5236496-5 (Version None)
Quarter: 2007Q1

REPORT INFORMATION
  Report Type: 
  Country: None (occurrence: None)
  Receive Date: 20061208
  Receipt Date: 20060612
  Transmission Date: 20070707
  Serious: Yes (Other)
  Sender: FDA-Public Use
  Company Number: 2006UW12509

PATIENT
  Age: 56 Year
  Sex: Male
  Weight: 68.038 kg

DRUGS (3)
  1. CRESTOR [Suspect]
  2. NITROGLYCERIN [Concomitant]
  3. ASPIRIN [Concomitant]

REACTIONS (1)
  - DYSGEUSIA [None]
